FAERS Safety Report 10269710 (Version 1)
Quarter: 2014Q3

REPORT INFORMATION
  Report Type: Other
  Country: GB (occurrence: GB)
  Receive Date: 20140701
  Receipt Date: 20140701
  Transmission Date: 20150326
  Serious: Yes (Hospitalization, Disabling, Other)
  Sender: FDA-Public Use
  Company Number: GB-LUPIN PHARMACEUTICALS INC.-E2B_00002202

PATIENT
  Age: 45 Year
  Sex: Male
  Weight: 86.17 kg

DRUGS (3)
  1. ATORVASTATIN [Suspect]
     Active Substance: ATORVASTATIN
     Indication: HYPERCHOLESTEROLAEMIA
     Route: 048
     Dates: start: 20131001, end: 20140228
  2. SINUTAB SINUS MAXIMUM STRENGTH [Concomitant]
     Active Substance: ACETAMINOPHEN\PHENYLEPHRINE HYDROCHLORIDE
     Indication: PRODUCT USED FOR UNKNOWN INDICATION
     Route: 065
  3. SIMVASTATIN. [Suspect]
     Active Substance: SIMVASTATIN
     Indication: HYPERCHOLESTEROLAEMIA
     Route: 048
     Dates: start: 20131001, end: 20140330

REACTIONS (4)
  - Arthralgia [Recovered/Resolved with Sequelae]
  - Joint crepitation [Unknown]
  - Musculoskeletal pain [Recovered/Resolved with Sequelae]
  - Cartilage injury [Unknown]

NARRATIVE: CASE EVENT DATE: 20131014
